FAERS Safety Report 7821630-0 (Version None)
Quarter: 2011Q4

REPORT INFORMATION
  Report Type: 
  Country: None (occurrence: None)
  Receive Date: 20111018
  Receipt Date: 20101110
  Transmission Date: 20120403
  Serious: No
  Sender: FDA-Public Use
  Company Number: US-ASTRAZENECA-2010SE53879

PATIENT
  Age: 27772 Day
  Sex: Male
  Weight: 95.3 kg

DRUGS (7)
  1. PLAVIX [Concomitant]
     Indication: HYPERCHOLESTEROLAEMIA
     Route: 048
  2. SYMBICORT [Suspect]
     Indication: CHRONIC OBSTRUCTIVE PULMONARY DISEASE
     Dosage: 2 INHALATIONS DAILY
     Route: 055
     Dates: start: 20101025, end: 20101031
  3. POTASSIUM CHLORIDE [Concomitant]
     Route: 048
  4. BENAZEPRIL HYDROCHLORIDE [Concomitant]
     Indication: HYPERTENSION
     Route: 048
  5. COREG [Concomitant]
     Indication: CARDIAC DISORDER
     Route: 048
  6. FUROSEMIDE [Concomitant]
     Indication: DIURETIC THERAPY
     Route: 048
  7. SIMVASTATIN [Concomitant]
     Indication: HYPERCHOLESTEROLAEMIA
     Route: 048

REACTIONS (1)
  - DYSPNOEA [None]
